FAERS Safety Report 8499915-7 (Version None)
Quarter: 2012Q2

REPORT INFORMATION
  Report Type: 
  Country: None (occurrence: None)
  Receive Date: 20120629
  Receipt Date: 20120618
  Transmission Date: 20120825
  Serious: Yes (Hospitalization, Other)
  Sender: FDA-Public Use
  Company Number: 2012P1018305

PATIENT
  Age: 39 Year
  Sex: Female
  Weight: 81.1939 kg

DRUGS (1)
  1. DIPHENHYDRAMINE HCL [Suspect]
     Indication: SCAN BRAIN
     Dosage: 500 MG;X1;IV
     Route: 042
     Dates: start: 20120203, end: 20120203

REACTIONS (18)
  - ELECTROCARDIOGRAM PR SHORTENED [None]
  - DYSKINESIA [None]
  - NAUSEA [None]
  - DYSPNOEA [None]
  - VISUAL IMPAIRMENT [None]
  - HYPOAESTHESIA [None]
  - TOXICITY TO VARIOUS AGENTS [None]
  - ACCIDENTAL OVERDOSE [None]
  - WEIGHT DECREASED [None]
  - ANXIETY [None]
  - FEELING ABNORMAL [None]
  - THROAT TIGHTNESS [None]
  - PARAESTHESIA [None]
  - DIARRHOEA [None]
  - SINUS TACHYCARDIA [None]
  - MIDDLE INSOMNIA [None]
  - DRY MOUTH [None]
  - ADRENAL DISORDER [None]
